FAERS Safety Report 14058253 (Version 3)
Quarter: 2018Q1

REPORT INFORMATION
  Report Type: Spontaneous
  Country: JP (occurrence: JP)
  Receive Date: 20171006
  Receipt Date: 20180112
  Transmission Date: 20180508
  Serious: Yes (Hospitalization)
  Sender: FDA-Public Use
  Company Number: PHHY2017JP146331

PATIENT
  Age: 57 Year
  Sex: Female
  Weight: 47 kg

DRUGS (3)
  1. ZOMETA [Suspect]
     Active Substance: ZOLEDRONIC ACID
     Indication: METASTASES TO LYMPH NODES
  2. ZOMETA [Suspect]
     Active Substance: ZOLEDRONIC ACID
     Indication: BREAST CANCER
     Dosage: UNK
     Route: 041
     Dates: start: 20080508, end: 20120331
  3. ZOMETA [Suspect]
     Active Substance: ZOLEDRONIC ACID
     Indication: METASTASES TO BONE

REACTIONS (12)
  - Primary sequestrum [Unknown]
  - Gingival erythema [Unknown]
  - Bone lesion [Unknown]
  - Exposed bone in jaw [Unknown]
  - Purulence [Unknown]
  - Osteolysis [Unknown]
  - Excessive granulation tissue [Unknown]
  - Pain [Unknown]
  - Osteonecrosis of jaw [Not Recovered/Not Resolved]
  - Pain in jaw [Unknown]
  - Soft tissue inflammation [Unknown]
  - Gingival swelling [Unknown]

NARRATIVE: CASE EVENT DATE: 201103
